FAERS Safety Report 5523878-7 (Version None)
Quarter: 2007Q4

REPORT INFORMATION
  Report Type: 
  Country: None (occurrence: None)
  Receive Date: 20071121
  Receipt Date: 20071109
  Transmission Date: 20080405
  Serious: Yes (Hospitalization, Other)
  Sender: FDA-Public Use
  Company Number: US-SHR-US-SHR-04-022761

PATIENT
  Age: 65 Year
  Sex: Female

DRUGS (4)
  1. BETASERON [Suspect]
     Indication: PROGRESSIVE RELAPSING MULTIPLE SCLEROSIS
     Dosage: 8 MIU, EVERY 2D
     Route: 058
     Dates: start: 19930909
  2. BETASERON [Suspect]
     Dosage: 8 MIU, 3X/WEEK
     Route: 058
     Dates: start: 19940705
  3. NEURONTIN [Concomitant]
     Dates: start: 20010101
  4. KLONOPIN [Concomitant]
     Indication: MUSCLE SPASMS
     Dates: start: 20000101

REACTIONS (2)
  - BLOOD PRESSURE DECREASED [None]
  - STREPTOCOCCAL INFECTION [None]
